FAERS Safety Report 21479101 (Version 1)
Quarter: 2022Q4

REPORT INFORMATION
  Report Type: Spontaneous
  Country: US (occurrence: US)
  Receive Date: 20221019
  Receipt Date: 20221019
  Transmission Date: 20230113
  Serious: No
  Sender: FDA-Public Use
  Company Number: US-PFIZER INC-PV202200082460

PATIENT
  Sex: Male
  Weight: 107.9 kg

DRUGS (3)
  1. SILVADENE [Interacting]
     Active Substance: SILVER SULFADIAZINE
     Indication: Wound infection
     Dosage: UNK (APPLIED TO THE WOUND AS DIRECTED)
     Route: 061
  2. LIDOCAINE HYDROCHLORIDE [Interacting]
     Active Substance: LIDOCAINE HYDROCHLORIDE
     Dosage: UNK (APPLIED TO THE WOUND AS DIRECTED)
     Route: 061
  3. COLLAGENASE SANTYL [Interacting]
     Active Substance: COLLAGENASE CLOSTRIDIUM HISTOLYTICUM
     Indication: Wound infection
     Dosage: UNK (ONCE, APPLIED TO THE RIGHT LOWER LEG)
     Route: 061
     Dates: start: 20220909, end: 20220909

REACTIONS (3)
  - Application site vesicles [Recovering/Resolving]
  - Application site pain [Recovered/Resolved]
  - Drug interaction [Unknown]

NARRATIVE: CASE EVENT DATE: 20220909
